FAERS Safety Report 6028757-7 (Version None)
Quarter: 2009Q1

REPORT INFORMATION
  Report Type: 
  Country: None (occurrence: None)
  Receive Date: 20090106
  Receipt Date: 20081230
  Transmission Date: 20090719
  Serious: Yes (Hospitalization, Congenital Anomaly)
  Sender: FDA-Public Use
  Company Number: A0760057A

PATIENT
  Sex: Male
  Weight: 2.3 kg

DRUGS (4)
  1. COMBIVIR [Suspect]
     Indication: ANTIVIRAL TREATMENT
     Dosage: 2TAB PER DAY
     Dates: start: 20080707
  2. METHADONE HCL [Suspect]
     Indication: DRUG USE FOR UNKNOWN INDICATION
  3. COCAINE [Suspect]
     Indication: DRUG USE FOR UNKNOWN INDICATION
  4. KALETRA [Concomitant]
     Indication: ANTIVIRAL TREATMENT
     Dates: start: 20080707

REACTIONS (4)
  - ATRIAL SEPTAL DEFECT [None]
  - CARDIOMEGALY [None]
  - DRUG EXPOSURE DURING PREGNANCY [None]
  - TRANSPOSITION OF THE GREAT VESSELS [None]
